FAERS Safety Report 10019715 (Version 2)
Quarter: 2014Q1

REPORT INFORMATION
  Report Type: Spontaneous
  Country: US (occurrence: US)
  Receive Date: 20140318
  Receipt Date: 20140328
  Transmission Date: 20141002
  Serious: Yes (Death, Hospitalization)
  Sender: FDA-Public Use
  Company Number: US-ACTELION-A-US2014-96312

PATIENT
  Age: 71 Year
  Sex: Female

DRUGS (2)
  1. VENTAVIS [Suspect]
     Indication: PULMONARY ARTERIAL HYPERTENSION
     Dosage: 5 MCG, 6-9 XDAILY
     Route: 055
     Dates: start: 20130724
  2. ADCIRCA [Concomitant]

REACTIONS (4)
  - Death [Fatal]
  - Dementia [Unknown]
  - Abnormal behaviour [Unknown]
  - Drug dose omission [Unknown]
